FAERS Safety Report 4304144-4 (Version None)
Quarter: 2004Q1

REPORT INFORMATION
  Report Type: 
  Country: None (occurrence: None)
  Receive Date: 20040225
  Receipt Date: 20040218
  Transmission Date: 20041129
  Serious: Yes (Other)
  Sender: FDA-Public Use
  Company Number: PHBS2004CA02485

PATIENT

DRUGS (2)
  1. DIOVAN [Suspect]
     Dosage: 80 MG/DAY
     Route: 048
     Dates: start: 20021001
  2. GLUCONORM [Concomitant]
     Dates: start: 20030201

REACTIONS (1)
  - BLOOD HOMOCYSTEINE INCREASED [None]
